FAERS Safety Report 6393755-0 (Version None)
Quarter: 2009Q4

REPORT INFORMATION
  Report Type: 
  Country: None (occurrence: None)
  Receive Date: 20091008
  Receipt Date: 20091002
  Transmission Date: 20100525
  Serious: Yes (Hospitalization, Other)
  Sender: FDA-Public Use
  Company Number: ES-AVENTIS-200921184GDDC

PATIENT
  Age: 80 Year
  Sex: Female

DRUGS (6)
  1. DAONIL [Suspect]
     Route: 048
  2. SEROXAT [Suspect]
     Route: 048
  3. SINTROM [Suspect]
     Route: 048
  4. DIGOXIN [Concomitant]
     Route: 048
  5. DILTIAZEM [Concomitant]
     Route: 048
  6. CO-APROVEL [Concomitant]
     Route: 048

REACTIONS (3)
  - DRUG INTERACTION [None]
  - LOWER GASTROINTESTINAL HAEMORRHAGE [None]
  - MELAENA [None]
